FAERS Safety Report 13633745 (Version 1)
Quarter: 2017Q2

REPORT INFORMATION
  Report Type: Spontaneous
  Country: US (occurrence: US)
  Receive Date: 20170531
  Receipt Date: 20170531
  Transmission Date: 20170830
  Serious: No
  Sender: FDA-Public Use
  Company Number: US-ASTELLAS-1568880

PATIENT
  Sex: Female

DRUGS (23)
  1. BENTYL [Concomitant]
     Active Substance: DICYCLOMINE HYDROCHLORIDE
  2. VISION FORMULA [Concomitant]
  3. CODEINE SULFATE. [Concomitant]
     Active Substance: CODEINE SULFATE
  4. LOMOTIL (UNITED STATES) [Concomitant]
  5. ZYRTEC [Concomitant]
     Active Substance: CETIRIZINE HYDROCHLORIDE
  6. ZYRTEC [Concomitant]
     Active Substance: CETIRIZINE HYDROCHLORIDE
     Indication: HYPERSENSITIVITY
  7. VITAMIN A [Concomitant]
     Active Substance: VITAMIN A
  8. SINEMET CR [Concomitant]
     Active Substance: CARBIDOPA\LEVODOPA
  9. NEURONTIN [Concomitant]
     Active Substance: GABAPENTIN
  10. LIPITOR [Concomitant]
     Active Substance: ATORVASTATIN CALCIUM
  11. TARCEVA [Suspect]
     Active Substance: ERLOTINIB HYDROCHLORIDE
     Indication: LUNG NEOPLASM MALIGNANT
     Route: 048
     Dates: start: 20150408
  12. TARCEVA [Suspect]
     Active Substance: ERLOTINIB HYDROCHLORIDE
     Route: 048
     Dates: start: 20150504
  13. LISINOPRIL. [Concomitant]
     Active Substance: LISINOPRIL
  14. PANTOPRAZOLE SODIUM. [Concomitant]
     Active Substance: PANTOPRAZOLE SODIUM
  15. PLAVIX [Concomitant]
     Active Substance: CLOPIDOGREL BISULFATE
  16. VICODIN [Concomitant]
     Active Substance: ACETAMINOPHEN\HYDROCODONE BITARTRATE
  17. AMITRIPTYLINE HCL [Concomitant]
     Active Substance: AMITRIPTYLINE
  18. ELIQUIS [Concomitant]
     Active Substance: APIXABAN
  19. LUTEIN [Concomitant]
     Active Substance: LUTEIN
  20. CATAPRES [Concomitant]
     Active Substance: CLONIDINE HYDROCHLORIDE
  21. RESTORIL [Concomitant]
     Active Substance: TEMAZEPAM
  22. LEXAPRO [Concomitant]
     Active Substance: ESCITALOPRAM OXALATE
  23. CULTURELLE [Concomitant]
     Active Substance: LACTOBACILLUS RHAMNOSUS

REACTIONS (3)
  - Asthenia [Unknown]
  - Diarrhoea [Unknown]
  - Candida infection [Unknown]
